FAERS Safety Report 4448946-2 (Version None)
Quarter: 2004Q3

REPORT INFORMATION
  Report Type: 
  Country: None (occurrence: None)
  Receive Date: 20040909
  Receipt Date: 20040824
  Transmission Date: 20050211
  Serious: Yes (Hospitalization)
  Sender: FDA-Public Use
  Company Number: USA040876499

PATIENT
  Age: 57 Year
  Sex: Male

DRUGS (3)
  1. ZYPREXA [Suspect]
  2. DEPAKOTE [Concomitant]
  3. ALBILIFY (ARIPIPRAZOLE) [Concomitant]

REACTIONS (4)
  - AGITATION [None]
  - COGNITIVE DISORDER [None]
  - CONDITION AGGRAVATED [None]
  - PRESSURE OF SPEECH [None]
